FAERS Safety Report 10939968 (Version 1)
Quarter: 2015Q1

REPORT INFORMATION
  Report Type: Spontaneous
  Country: US (occurrence: None)
  Receive Date: 20150212
  Receipt Date: 20150212
  Transmission Date: 20150721
  Serious: No
  Sender: FDA-Public Use
  Company Number: TPA2011A02573

PATIENT
  Age: 66 Year
  Sex: Female
  Weight: 114.7 kg

DRUGS (3)
  1. PLAVIX [Concomitant]
     Active Substance: CLOPIDOGREL BISULFATE
  2. ULORIC [Suspect]
     Active Substance: FEBUXOSTAT
     Indication: GOUT
     Route: 048
     Dates: start: 20110520
  3. ASPIRIN (ACETYLSALICYLIC ACID) [Concomitant]
     Active Substance: ASPIRIN

REACTIONS (6)
  - Headache [None]
  - Blood blister [None]
  - Contusion [None]
  - Nodule [None]
  - Dizziness [None]
  - Pruritus [None]

NARRATIVE: CASE EVENT DATE: 201105
